FAERS Safety Report 16364237 (Version 2)
Quarter: 2019Q3

REPORT INFORMATION
  Report Type: Spontaneous
  Country: US (occurrence: US)
  Receive Date: 20190528
  Receipt Date: 20190801
  Transmission Date: 20191004
  Serious: Yes (Other)
  Sender: FDA-Public Use
  Company Number: US-TAKEDA-2019TUS010291

PATIENT

DRUGS (94)
  1. UREA. [Concomitant]
     Active Substance: UREA
     Dosage: UNK
     Dates: start: 2009, end: 2016
  2. ONDANSETRON ODT DRLA [Concomitant]
     Active Substance: ONDANSETRON
     Dosage: UNK
     Dates: start: 2014, end: 2017
  3. ZEMPLAR [Concomitant]
     Active Substance: PARICALCITOL
     Dosage: UNK
     Dates: start: 2012
  4. AMITIZA [Concomitant]
     Active Substance: LUBIPROSTONE
     Dosage: UNK
     Dates: start: 2009, end: 2012
  5. SPIRIVA [Concomitant]
     Active Substance: TIOTROPIUM BROMIDE MONOHYDRATE
     Dosage: UNK
     Dates: start: 2011
  6. NITROQUICK [Concomitant]
     Active Substance: NITROGLYCERIN
     Dosage: UNK
     Dates: start: 2008, end: 2009
  7. CIMETIDINE [Concomitant]
     Active Substance: CIMETIDINE
     Dosage: UNK
  8. DEXILANT [Suspect]
     Active Substance: DEXLANSOPRAZOLE
     Indication: GASTROOESOPHAGEAL REFLUX DISEASE
     Dosage: UNK
     Route: 048
     Dates: start: 2014
  9. OMEPRAZOLE. [Suspect]
     Active Substance: OMEPRAZOLE
     Indication: PRODUCT USED FOR UNKNOWN INDICATION
     Dosage: UNK
     Route: 048
  10. VIRTUSSIN AC [Concomitant]
     Active Substance: CODEINE PHOSPHATE\GUAIFENESIN
     Dosage: UNK
     Dates: start: 2015
  11. KIONEX [Concomitant]
     Active Substance: SODIUM POLYSTYRENE SULFONATE
     Dosage: UNK
     Dates: start: 2010, end: 2015
  12. MIDODRINE [Concomitant]
     Active Substance: MIDODRINE
     Dosage: UNK
     Dates: start: 2013, end: 2014
  13. ACTOS [Concomitant]
     Active Substance: PIOGLITAZONE HYDROCHLORIDE
     Dosage: UNK
     Dates: start: 2008, end: 2013
  14. HYDRALAZINE [Concomitant]
     Active Substance: HYDRALAZINE HYDROCHLORIDE
     Dosage: UNK
     Dates: start: 2010, end: 2011
  15. BUMETANIDE. [Concomitant]
     Active Substance: BUMETANIDE
     Dosage: UNK
     Dates: start: 2012
  16. LOVAZA [Concomitant]
     Active Substance: OMEGA-3-ACID ETHYL ESTERS
     Dosage: UNK
     Dates: start: 2010
  17. MINOXIDIL. [Concomitant]
     Active Substance: MINOXIDIL
     Dosage: UNK
     Dates: start: 2010
  18. PRILOSEC [Suspect]
     Active Substance: OMEPRAZOLE MAGNESIUM
     Indication: GASTROOESOPHAGEAL REFLUX DISEASE
     Dosage: UNK
     Route: 048
  19. LIDOCAINE 5% EXTRA [Concomitant]
     Dosage: UNK
     Dates: start: 20130716, end: 20170313
  20. SENSIPAR [Concomitant]
     Active Substance: CINACALCET HYDROCHLORIDE
     Dosage: 50 MILLIGRAM
     Dates: start: 2013, end: 2017
  21. NOVOLOG [Concomitant]
     Active Substance: INSULIN ASPART
     Dosage: UNK
     Dates: start: 2009, end: 2017
  22. LEVOFLOXACIN. [Concomitant]
     Active Substance: LEVOFLOXACIN
     Dosage: 500 MILLIGRAM
     Dates: start: 2017
  23. L-ARGININE                         /00126101/ [Concomitant]
     Active Substance: ARGININE
     Dosage: UNK
     Dates: start: 2016
  24. ATROPINE SULFAAT [Concomitant]
     Dosage: UNK
     Dates: start: 2013
  25. ADVIL (MEFENAMIC ACID) [Concomitant]
     Active Substance: MEFENAMIC ACID
     Indication: HEADACHE
     Dosage: UNK
  26. PREVACID 24 HR [Suspect]
     Active Substance: LANSOPRAZOLE
     Indication: PRODUCT USED FOR UNKNOWN INDICATION
     Dosage: UNK
     Route: 048
  27. SIMVASTATIN. [Concomitant]
     Active Substance: SIMVASTATIN
     Dosage: 75 MILLIGRAM
     Dates: start: 20090129, end: 20170208
  28. ALLOPURINOL. [Concomitant]
     Active Substance: ALLOPURINOL
     Dosage: 100 MILLIGRAM
     Dates: start: 20090203, end: 20171129
  29. PREDNISONE. [Concomitant]
     Active Substance: PREDNISONE
     Dosage: UNK
     Dates: start: 2017
  30. DOXYCYCLINE HYCLATE. [Concomitant]
     Active Substance: DOXYCYCLINE HYCLATE
     Dosage: UNK
     Dates: start: 2010, end: 2015
  31. ATROPINE SULFAAT [Concomitant]
     Dosage: UNK
     Dates: start: 2015
  32. VIT D [Concomitant]
     Active Substance: VITAMIN D NOS
     Dosage: UNK
     Dates: start: 2011
  33. COREG [Concomitant]
     Active Substance: CARVEDILOL
     Dosage: UNK
     Dates: start: 2009
  34. FAMOTIDINE. [Concomitant]
     Active Substance: FAMOTIDINE
     Dosage: UNK
     Dates: start: 2009
  35. ADVIL (MEFENAMIC ACID) [Concomitant]
     Active Substance: MEFENAMIC ACID
     Indication: TOOTHACHE
  36. PREVACID [Suspect]
     Active Substance: LANSOPRAZOLE
     Indication: GASTROOESOPHAGEAL REFLUX DISEASE
     Dosage: UNK
     Route: 048
     Dates: start: 2010
  37. CLOPIDOGREL [Concomitant]
     Active Substance: CLOPIDOGREL BISULFATE
     Dosage: 800 MILLIGRAM
     Dates: start: 2012, end: 2017
  38. NASONEX [Concomitant]
     Active Substance: MOMETASONE FUROATE
     Dosage: UNK
     Dates: start: 2009, end: 2017
  39. VENTOLIN HFA [Concomitant]
     Active Substance: ALBUTEROL SULFATE
     Dosage: UNK
     Dates: start: 2011, end: 2017
  40. CARVEDILOL. [Concomitant]
     Active Substance: CARVEDILOL
     Dosage: UNK
     Dates: start: 2009, end: 2017
  41. CYCLOBENZAPRINE. [Concomitant]
     Active Substance: CYCLOBENZAPRINE
     Dosage: UNK
     Dates: start: 2017
  42. DUEXIS [Concomitant]
     Active Substance: FAMOTIDINE\IBUPROFEN
     Dosage: UNK
     Dates: start: 20170928, end: 201812
  43. FLUOCINONIDE. [Concomitant]
     Active Substance: FLUOCINONIDE
     Dosage: UNK
     Dates: start: 2009, end: 2016
  44. VORICONAZOLE. [Concomitant]
     Active Substance: VORICONAZOLE
     Dosage: UNK
     Dates: start: 2013
  45. PIOGLITAZONE. [Concomitant]
     Active Substance: PIOGLITAZONE
     Dosage: UNK
     Dates: start: 2012
  46. KETOROLAC [Concomitant]
     Active Substance: KETOROLAC TROMETHAMINE
     Dosage: UNK
     Dates: start: 2011, end: 2012
  47. ISOSORBIDE MONONITRATE. [Concomitant]
     Active Substance: ISOSORBIDE MONONITRATE
     Dosage: UNK
     Dates: start: 2010, end: 2012
  48. TOLNAFTATE. [Concomitant]
     Active Substance: TOLNAFTATE
     Dosage: UNK
     Dates: start: 2011
  49. DIAZEPAM. [Concomitant]
     Active Substance: DIAZEPAM
     Dosage: UNK
     Dates: start: 2012
  50. DIOVAN [Concomitant]
     Active Substance: VALSARTAN
     Dosage: UNK
     Dates: start: 2009, end: 2010
  51. AZITHROMYCIN ANHYDROUS. [Concomitant]
     Active Substance: AZITHROMYCIN ANHYDROUS
     Dosage: 250 MILLIGRAM
     Dates: start: 2010, end: 2017
  52. METHYLPREDISOLONE [Concomitant]
     Active Substance: METHYLPREDNISOLONE
     Dosage: UNK
     Dates: start: 2017
  53. TRULANCE [Concomitant]
     Active Substance: PLECANATIDE
     Dosage: UNK
     Dates: start: 2017
  54. CHERATUSSIN AC [Concomitant]
     Active Substance: CODEINE PHOSPHATE\GUAIFENESIN
     Dosage: UNK
     Dates: start: 2010, end: 2013
  55. GUAIATUSSIN AC [Concomitant]
     Active Substance: CODEINE PHOSPHATE\GUAIFENESIN
     Dosage: UNK
     Dates: start: 2014
  56. GENTAMICIN. [Concomitant]
     Active Substance: GENTAMICIN
     Dosage: UNK
     Dates: start: 2012
  57. EZFE [Concomitant]
     Dosage: UNK
     Dates: start: 2011, end: 2012
  58. CLONIDINE. [Concomitant]
     Active Substance: CLONIDINE
     Dosage: UNK
     Dates: start: 2010
  59. FUROSEMIDE. [Concomitant]
     Active Substance: FUROSEMIDE
     Dosage: UNK
     Dates: start: 2009, end: 2011
  60. WELCHOL [Concomitant]
     Active Substance: COLESEVELAM HYDROCHLORIDE
     Dosage: UNK
     Dates: start: 2010
  61. COZAAR [Concomitant]
     Active Substance: LOSARTAN POTASSIUM
     Dosage: UNK
     Dates: start: 2008, end: 2009
  62. CARISOPRODOL. [Concomitant]
     Active Substance: CARISOPRODOL
     Dosage: UNK
     Dates: start: 2009
  63. CIPROFLOXACIN. [Concomitant]
     Active Substance: CIPROFLOXACIN
     Dosage: UNK
     Dates: start: 2009
  64. ASPIRIN 81 [Concomitant]
     Active Substance: ASPIRIN
     Dosage: UNK UNK, DAILY
  65. PROTONIX [Suspect]
     Active Substance: PANTOPRAZOLE SODIUM
     Indication: GASTROOESOPHAGEAL REFLUX DISEASE
     Dosage: UNK
     Route: 048
     Dates: start: 2011
  66. NEXIUM 24HR [Suspect]
     Active Substance: ESOMEPRAZOLE MAGNESIUM
     Indication: PRODUCT USED FOR UNKNOWN INDICATION
     Dosage: UNK
     Route: 048
  67. ACIPHEX [Suspect]
     Active Substance: RABEPRAZOLE SODIUM
     Indication: GASTROOESOPHAGEAL REFLUX DISEASE
     Dosage: UNK
     Route: 048
     Dates: start: 2011
  68. PREDNISOLONE. [Concomitant]
     Active Substance: PREDNISOLONE
     Dosage: UNK
     Dates: start: 20101027, end: 20171231
  69. FOLINIC PLUS [Concomitant]
     Dosage: UNK
     Dates: start: 2017
  70. AMLODIPINE BESILATE [Concomitant]
     Active Substance: AMLODIPINE BESYLATE
     Dosage: 50 MILLIGRAM
     Dates: start: 2011, end: 2017
  71. TRIAMCINOLONE [Concomitant]
     Active Substance: TRIAMCINOLONE
     Dosage: UNK
     Dates: start: 2016
  72. FLUTICASONE. [Concomitant]
     Active Substance: FLUTICASONE
     Dosage: UNK
     Dates: start: 2011
  73. NIFEDICAL XL [Concomitant]
     Active Substance: NIFEDIPINE
     Dosage: UNK
     Dates: start: 2015
  74. PLAVIX [Concomitant]
     Active Substance: CLOPIDOGREL BISULFATE
     Dosage: UNK
     Dates: start: 2008, end: 2014
  75. LATANOPROST. [Concomitant]
     Active Substance: LATANOPROST
     Dosage: UNK
     Dates: start: 2013
  76. FERROUS SULFATE. [Concomitant]
     Active Substance: FERROUS SULFATE
     Dosage: UNK
     Dates: start: 2011
  77. FOLTRIN [Concomitant]
     Dosage: UNK
     Dates: start: 2010
  78. NORTRIPTYLINE [Concomitant]
     Active Substance: NORTRIPTYLINE
     Dosage: UNK
     Dates: start: 2010
  79. ALBUTEROL                          /00139501/ [Concomitant]
     Active Substance: ALBUTEROL
     Dosage: UNK
     Dates: start: 2010
  80. HECTOROL [Concomitant]
     Active Substance: DOXERCALCIFEROL
     Dosage: UNK
     Dates: start: 2010
  81. NEXIUM [Suspect]
     Active Substance: ESOMEPRAZOLE MAGNESIUM
     Indication: GASTROOESOPHAGEAL REFLUX DISEASE
     Dosage: 20 MILLIGRAM, QD
     Route: 048
     Dates: start: 2012
  82. PROAIR HFA [Concomitant]
     Active Substance: ALBUTEROL SULFATE
     Dosage: UNK
     Dates: start: 20081202, end: 20151229
  83. RENVELA [Concomitant]
     Active Substance: SEVELAMER CARBONATE
     Dosage: 800 MILLIGRAM
     Dates: start: 2012, end: 2017
  84. LINZESS [Concomitant]
     Active Substance: LINACLOTIDE
     Dosage: UNK
     Dates: start: 2013, end: 2017
  85. VIRTUSSIN AC [Concomitant]
     Active Substance: CODEINE PHOSPHATE\GUAIFENESIN
     Dosage: UNK
     Dates: start: 2014
  86. VIRTUSSIN AC [Concomitant]
     Active Substance: CODEINE PHOSPHATE\GUAIFENESIN
     Dosage: UNK
     Dates: start: 2017
  87. CHLO HIST [Concomitant]
     Active Substance: CHLOPHEDIANOL HYDROCHLORIDE\DEXBROMPHENIRAMINE MALEATE
     Dosage: UNK
     Dates: start: 2017
  88. LANTUS [Concomitant]
     Active Substance: INSULIN GLARGINE
     Dosage: UNK
     Dates: start: 2011, end: 2016
  89. FLUTICASONE. [Concomitant]
     Active Substance: FLUTICASONE
     Dosage: UNK
     Dates: start: 2017
  90. SILVER SULFADIAZINE. [Concomitant]
     Active Substance: SILVER SULFADIAZINE
     Dosage: UNK
     Dates: start: 2015
  91. SODIUM CHLORIDE. [Concomitant]
     Active Substance: SODIUM CHLORIDE
     Dosage: UNK
     Dates: start: 2010
  92. ZYMAR [Concomitant]
     Active Substance: GATIFLOXACIN
     Dosage: UNK
     Dates: start: 2010
  93. VIGAMOX [Concomitant]
     Active Substance: MOXIFLOXACIN HYDROCHLORIDE
     Dosage: UNK
     Dates: start: 2010
  94. PEPCID                             /00305201/ [Concomitant]
     Active Substance: ALUMINUM HYDROXIDE\MAGNESIUM CARBONATE
     Dosage: UNK

REACTIONS (4)
  - Renal impairment [Not Recovered/Not Resolved]
  - End stage renal disease [Not Recovered/Not Resolved]
  - Renal injury [Unknown]
  - Renal failure [Unknown]

NARRATIVE: CASE EVENT DATE: 2009
